FAERS Safety Report 13164505 (Version 1)
Quarter: 2017Q1

REPORT INFORMATION
  Report Type: Spontaneous
  Country: US (occurrence: US)
  Receive Date: 20170130
  Receipt Date: 20170130
  Transmission Date: 20170428
  Serious: No
  Sender: FDA-Public Use
  Company Number: US-ABBVIE-16P-163-1572085-00

PATIENT
  Sex: Male

DRUGS (2)
  1. LUPRON DEPOT [Suspect]
     Active Substance: LEUPROLIDE ACETATE
     Indication: PROSTATE CANCER
     Route: 030
     Dates: start: 201512
  2. MEGESTROL [Suspect]
     Active Substance: MEGESTROL
     Indication: HOT FLUSH
     Route: 065
     Dates: start: 201602

REACTIONS (5)
  - Hot flush [Not Recovered/Not Resolved]
  - Erectile dysfunction [Not Recovered/Not Resolved]
  - Increased appetite [Not Recovered/Not Resolved]
  - Weight increased [Not Recovered/Not Resolved]
  - Libido decreased [Not Recovered/Not Resolved]

NARRATIVE: CASE EVENT DATE: 201512
